FAERS Safety Report 12284835 (Version 1)
Quarter: 2016Q2

REPORT INFORMATION
  Report Type: Spontaneous
  Country: US (occurrence: US)
  Receive Date: 20160420
  Receipt Date: 20160420
  Transmission Date: 20160815
  Serious: No
  Sender: FDA-Public Use
  Company Number: US-TEVA-647833USA

PATIENT
  Age: 21 Year
  Sex: Female

DRUGS (1)
  1. ZECUITY [Suspect]
     Active Substance: SUMATRIPTAN SUCCINATE
     Route: 062
     Dates: start: 20160321, end: 20160321

REACTIONS (6)
  - Application site exfoliation [Not Recovered/Not Resolved]
  - Application site rash [Recovered/Resolved]
  - Device issue [Unknown]
  - Product adhesion issue [Unknown]
  - Application site swelling [Recovered/Resolved]
  - Application site urticaria [Recovered/Resolved]

NARRATIVE: CASE EVENT DATE: 20160321
